FAERS Safety Report 17665083 (Version 2)
Quarter: 2020Q2

REPORT INFORMATION
  Report Type: Spontaneous
  Country: RO (occurrence: RO)
  Receive Date: 20200414
  Receipt Date: 20200623
  Transmission Date: 20200713
  Serious: Yes (Death, Hospitalization, Other)
  Sender: FDA-Public Use
  Company Number: RO-PFIZER INC-2020150837

PATIENT
  Age: 43 Year
  Sex: Female

DRUGS (2)
  1. IBRANCE [Suspect]
     Active Substance: PALBOCICLIB
     Indication: BREAST CANCER METASTATIC
     Dosage: 125 MG, CYCLIC (DAILY FOR 3 WEEKS, 1 WEEK BREAK)
     Dates: start: 20190625
  2. LETROZOLE. [Concomitant]
     Active Substance: LETROZOLE
     Dosage: UNK

REACTIONS (17)
  - General physical health deterioration [Unknown]
  - Acute hepatic failure [Unknown]
  - Hypercalcaemia [Unknown]
  - Sepsis [Fatal]
  - Hypoglycaemia [Unknown]
  - Hypokalaemia [Unknown]
  - Decreased appetite [Unknown]
  - Thrombocytopenia [Unknown]
  - International normalised ratio increased [Unknown]
  - Hepatorenal failure [Unknown]
  - Splenomegaly [Unknown]
  - Nausea [Unknown]
  - Neutropenia [Unknown]
  - Procalcitonin increased [Unknown]
  - Fatigue [Unknown]
  - Blood fibrinogen decreased [Unknown]
  - Hyponatraemia [Unknown]

NARRATIVE: CASE EVENT DATE: 201912
